FAERS Safety Report 20103684 (Version 1)
Quarter: 2021Q4

REPORT INFORMATION
  Report Type: Spontaneous
  Country: US (occurrence: None)
  Receive Date: 20211123
  Receipt Date: 20211123
  Transmission Date: 20220303
  Serious: Yes (Hospitalization)
  Sender: FDA-Public Use
  Company Number: None

PATIENT
  Sex: Female

DRUGS (1)
  1. REPATHA [Suspect]
     Active Substance: EVOLOCUMAB
     Indication: Lipoprotein metabolism disorder
     Dosage: OTHER FREQUENCY : Q2WKS;?
     Route: 058
     Dates: start: 20180119

REACTIONS (2)
  - Fall [None]
  - Fracture [None]
